FAERS Safety Report 21812890 (Version 1)
Quarter: 2023Q1

REPORT INFORMATION
  Report Type: Report from Study
  Country: US (occurrence: None)
  Receive Date: 20230103
  Receipt Date: 20230103
  Transmission Date: 20230417
  Serious: Yes (Hospitalization)
  Sender: FDA-Public Use
  Company Number: US-Eisai Medical Research-EC-2022-131120

PATIENT
  Age: 52 Year
  Sex: Male

DRUGS (1)
  1. LENVIMA [Suspect]
     Active Substance: LENVATINIB
     Indication: Renal cancer
     Dosage: TO RESTART AT REDUCED DOSE OF 14 MG DAILY.
     Route: 048
     Dates: end: 2022

REACTIONS (6)
  - Adrenal insufficiency [Unknown]
  - Decreased appetite [Unknown]
  - Dehydration [Unknown]
  - Hypotension [Unknown]
  - Loss of consciousness [Unknown]
  - Head injury [Unknown]

NARRATIVE: CASE EVENT DATE: 20220101
